FAERS Safety Report 5022616-4 (Version None)
Quarter: 2006Q2

REPORT INFORMATION
  Report Type: 
  Country: None (occurrence: None)
  Receive Date: 20060605
  Receipt Date: 20060522
  Transmission Date: 20061013
  Serious: Yes (Other)
  Sender: FDA-Public Use
  Company Number: 2006067563

PATIENT
  Age: 57 Year
  Sex: Female

DRUGS (1)
  1. PREDNISOLONE [Suspect]
     Indication: ARTHRITIS
     Dosage: 40 MG (40 MG, 1 IN 1 D), ORAL
     Route: 048

REACTIONS (2)
  - PUSTULAR PSORIASIS [None]
  - PYREXIA [None]
